FAERS Safety Report 7788273-9 (Version None)
Quarter: 2011Q3

REPORT INFORMATION
  Report Type: 
  Country: None (occurrence: None)
  Receive Date: 20110930
  Receipt Date: 20110921
  Transmission Date: 20111222
  Serious: Yes (Hospitalization)
  Sender: FDA-Public Use
  Company Number: DE-JNJFOC-20110908469

PATIENT
  Sex: Female

DRUGS (1)
  1. RISPERDAL [Suspect]
     Indication: PRODUCT USED FOR UNKNOWN INDICATION
     Route: 048
     Dates: start: 20110921, end: 20110921

REACTIONS (4)
  - ACCIDENTAL EXPOSURE [None]
  - TACHYCARDIA [None]
  - DIASTOLIC HYPERTENSION [None]
  - HEADACHE [None]
